FAERS Safety Report 14415290 (Version 1)
Quarter: 2018Q1

REPORT INFORMATION
  Report Type: Spontaneous
  Country: AR (occurrence: AR)
  Receive Date: 20180121
  Receipt Date: 20180121
  Transmission Date: 20180509
  Serious: Yes (Death, Hospitalization)
  Sender: FDA-Public Use
  Company Number: AR-AMGEN-ARGSP2018007074

PATIENT
  Age: 67 Year
  Sex: Female

DRUGS (1)
  1. ENBREL [Suspect]
     Active Substance: ETANERCEPT
     Indication: RHEUMATOID ARTHRITIS
     Dosage: 50 MG, WEEKLY
     Route: 065
     Dates: start: 20160930

REACTIONS (6)
  - Colitis [Unknown]
  - Vomiting [Unknown]
  - Malaise [Unknown]
  - Dyspnoea [Unknown]
  - Cardio-respiratory arrest [Fatal]
  - Abdominal discomfort [Unknown]

NARRATIVE: CASE EVENT DATE: 2017
